FAERS Safety Report 21977287 (Version 1)
Quarter: 2023Q1

REPORT INFORMATION
  Report Type: Report from Study
  Country: US (occurrence: US)
  Receive Date: 20230210
  Receipt Date: 20230210
  Transmission Date: 20230418
  Serious: Yes (Other)
  Sender: FDA-Public Use
  Company Number: US-MYLANLABS-2023M1004180

PATIENT
  Sex: Male
  Weight: 63.5 kg

DRUGS (3)
  1. AMNESTEEM [Suspect]
     Active Substance: ISOTRETINOIN
     Indication: Acne
     Dosage: 40 MILLIGRAM
     Route: 065
  2. AMNESTEEM [Suspect]
     Active Substance: ISOTRETINOIN
     Indication: Scar
     Dosage: 40 MILLIGRAM, QD
     Route: 048
     Dates: start: 20221128, end: 20221212
  3. LEXAPRO [Concomitant]
     Active Substance: ESCITALOPRAM OXALATE
     Indication: Depression
     Dosage: UNK, (DAILY)
     Route: 065

REACTIONS (3)
  - Abdominal discomfort [Recovered/Resolved]
  - Depression [Recovered/Resolved]
  - Mood swings [Unknown]
